FAERS Safety Report 16723884 (Version 2)
Quarter: 2019Q3

REPORT INFORMATION
  Report Type: Spontaneous
  Country: PT (occurrence: PT)
  Receive Date: 20190821
  Receipt Date: 20190905
  Transmission Date: 20191005
  Serious: Yes (Hospitalization, Other)
  Sender: FDA-Public Use
  Company Number: PHHY2019PT192851

PATIENT
  Age: 45 Year
  Sex: Female

DRUGS (2)
  1. DESOGESTREL [Suspect]
     Active Substance: DESOGESTREL
     Indication: PRODUCT USED FOR UNKNOWN INDICATION
     Route: 065
  2. ALPRAZOLAM. [Suspect]
     Active Substance: ALPRAZOLAM
     Indication: PRODUCT USED FOR UNKNOWN INDICATION
     Dosage: 1 MG
     Route: 065

REACTIONS (19)
  - Intentional product misuse [Unknown]
  - Postictal state [Unknown]
  - Hypokalaemia [Unknown]
  - Depressed mood [Unknown]
  - Gastroenteritis [Unknown]
  - Tremor [Recovering/Resolving]
  - Withdrawal syndrome [Unknown]
  - Anxiety [Unknown]
  - Insomnia [Unknown]
  - Generalised tonic-clonic seizure [Recovered/Resolved]
  - Vomiting [Unknown]
  - Myoclonus [Recovering/Resolving]
  - Loss of consciousness [Unknown]
  - Pyrexia [Unknown]
  - Incoherent [Recovering/Resolving]
  - Drug abuse [Unknown]
  - Delusion [Recovered/Resolved]
  - Epilepsy [Unknown]
  - Diarrhoea [Unknown]

NARRATIVE: CASE EVENT DATE: 20160918
